FAERS Safety Report 7790826-9 (Version None)
Quarter: 2011Q3

REPORT INFORMATION
  Report Type: 
  Country: None (occurrence: None)
  Receive Date: 20110930
  Receipt Date: 20110926
  Transmission Date: 20111222
  Serious: Yes (Other)
  Sender: FDA-Public Use
  Company Number: US-RB-027558-11

PATIENT
  Sex: Female

DRUGS (1)
  1. SUBOXONE [Suspect]
     Indication: PRODUCT USED FOR UNKNOWN INDICATION
     Dosage: SUBLINGUAL FILM; DOSING INFORMATION UNKNOWN.
     Route: 065

REACTIONS (5)
  - PERIORBITAL HAEMATOMA [None]
  - HEAD INJURY [None]
  - TONGUE BITING [None]
  - CONVULSION [None]
  - AMNESIA [None]
